FAERS Safety Report 8434114-6 (Version None)
Quarter: 2012Q2

REPORT INFORMATION
  Report Type: 
  Country: None (occurrence: None)
  Receive Date: 20120613
  Receipt Date: 20120604
  Transmission Date: 20120825
  Serious: Yes (Other)
  Sender: FDA-Public Use
  Company Number: US-ASTRAZENECA-2011SE28092

PATIENT
  Age: 48 Year
  Sex: Male
  Weight: 86.2 kg

DRUGS (19)
  1. SEROQUEL [Suspect]
     Route: 048
  2. SEROQUEL [Suspect]
     Route: 048
  3. SEROQUEL [Suspect]
     Route: 048
  4. INHALERS [Concomitant]
  5. SEROQUEL [Suspect]
     Indication: BIPOLAR DISORDER
     Route: 048
     Dates: start: 20110301
  6. SEROQUEL [Suspect]
     Route: 048
  7. SEROQUEL [Suspect]
     Indication: TACHYPHRENIA
     Route: 048
     Dates: start: 20110301
  8. SEROQUEL [Suspect]
     Route: 048
  9. SEROQUEL [Suspect]
     Route: 048
     Dates: start: 20110101
  10. SEROQUEL [Suspect]
     Route: 048
  11. HIGH CHOLESTEROL MED [Concomitant]
     Indication: BLOOD CHOLESTEROL INCREASED
  12. SEROQUEL [Suspect]
     Indication: DEPRESSION
     Route: 048
     Dates: start: 20110301
  13. SEROQUEL [Suspect]
     Route: 048
     Dates: start: 20110101
  14. SEROQUEL [Suspect]
     Route: 048
  15. SEROQUEL [Suspect]
     Route: 048
  16. SEROQUEL [Suspect]
     Route: 048
     Dates: start: 20110101
  17. SEROQUEL [Suspect]
     Route: 048
  18. HIGH BLOOD PRESSURE MED [Concomitant]
     Indication: HYPERTENSION
  19. XANAX [Concomitant]
     Dosage: 1 MG IN AM AND 2 MG HS

REACTIONS (11)
  - VOMITING [None]
  - DRUG DOSE OMISSION [None]
  - HOMICIDAL IDEATION [None]
  - HEADACHE [None]
  - STRESS [None]
  - DRUG PRESCRIBING ERROR [None]
  - INSOMNIA [None]
  - AGITATION [None]
  - ANGER [None]
  - MALAISE [None]
  - TREMOR [None]
